FAERS Safety Report 23395495 (Version 1)
Quarter: 2024Q1

REPORT INFORMATION
  Report Type: Spontaneous
  Country: BE (occurrence: BE)
  Receive Date: 20240112
  Receipt Date: 20240112
  Transmission Date: 20240409
  Serious: Yes (Other)
  Sender: FDA-Public Use
  Company Number: BE-002147023-NVSC2023BE247263

PATIENT
  Sex: Male

DRUGS (1)
  1. XOLAIR [Suspect]
     Active Substance: OMALIZUMAB
     Indication: Chronic spontaneous urticaria
     Dosage: 150 MG (2 INJECTIONS)
     Route: 058
     Dates: start: 20230920

REACTIONS (5)
  - Angioedema [Unknown]
  - Oedema [Not Recovered/Not Resolved]
  - Urticaria [Unknown]
  - Tracheitis [Unknown]
  - Viral infection [Unknown]

NARRATIVE: CASE EVENT DATE: 20231001
